FAERS Safety Report 19716099 (Version 2)
Quarter: 2021Q3

REPORT INFORMATION
  Report Type: Report from Study
  Country: None (occurrence: US)
  Receive Date: 20210819
  Receipt Date: 20210901
  Transmission Date: 20211014
  Serious: No
  Sender: FDA-Public Use
  Company Number: US-ABBVIE-21K-163-4040636-00

PATIENT
  Sex: Female

DRUGS (1)
  1. VENCLEXTA [Suspect]
     Active Substance: VENETOCLAX
     Indication: ACUTE MYELOID LEUKAEMIA
     Dosage: TAKE 1 TABLET(50 MG) BY MOUTH DAILY WITH FOOD AND FULL GLASS OF WATER.
     Route: 048
     Dates: start: 202108

REACTIONS (2)
  - Musculoskeletal pain [Unknown]
  - Pain [Unknown]

NARRATIVE: CASE EVENT DATE: 2021
